FAERS Safety Report 24107089 (Version 1)
Quarter: 2024Q3

REPORT INFORMATION
  Report Type: Report from Study
  Country: US (occurrence: US)
  Receive Date: 20240718
  Receipt Date: 20240718
  Transmission Date: 20241017
  Serious: Yes (Death, Other)
  Sender: ABBVIE
  Company Number: US-ABBVIE-5842486

PATIENT
  Sex: Female

DRUGS (36)
  1. VENCLEXTA [Suspect]
     Active Substance: VENETOCLAX
     Indication: Plasma cell myeloma
     Dosage: TABLET-100MG TAKE 4 TABLETS BY MOUTH ONCE DAILY. TAKE WITH FOOD AND WATER
     Route: 048
  2. ZOFRAN [Concomitant]
     Active Substance: ONDANSETRON HYDROCHLORIDE
     Indication: Nausea
     Dosage: TABLET-8MG TAKE 1 TABLET BY MOUTH EVERY 8 HOURS AS NEEDED FOR NAUSEA/VOMITING
     Route: 048
  3. POMALYST [Concomitant]
     Active Substance: POMALIDOMIDE
     Indication: Product used for unknown indication
     Dosage: TAKE 1 CAPSULE (2MG) BY? MOUTH ONCE DAILY FOR 21? DAYS. THEN OFF 1 WEEK.
     Route: 048
  4. K dur [Concomitant]
     Indication: Product used for unknown indication
     Dosage: TABLET-20MEQ TAKE 1? TABLET BY MOUTH ONCE DAILY
     Route: 048
  5. KLOR-CON [Concomitant]
     Active Substance: POTASSIUM CHLORIDE
     Indication: Product used for unknown indication
     Dosage: TABLET-20MEQ TAKE 1? TABLET BY MOUTH ONCE DAILY
     Route: 048
  6. ADEMETIONINE [Concomitant]
     Active Substance: ADEMETIONINE
     Indication: Product used for unknown indication
     Dosage: TAKE 800MG BY MOUTH? ONCE DAILY
     Route: 048
  7. XPOVIO [Concomitant]
     Active Substance: SELINEXOR
     Indication: Product used for unknown indication
     Dosage: TAKE 1 TABLET (60MG) BY? MOUTH ONE TIME A WEEK? WITH A GLASS OF WATER
     Route: 048
  8. TYLENOL [Concomitant]
     Active Substance: ACETAMINOPHEN
     Indication: Product used for unknown indication
     Dosage: TABLET-325MG TAKE 650MG BY MOUTH EVERY 6 HOURS AS NEEDED (TAKING? 325MG ALONG WITH A 500MG TABLET...
     Route: 048
  9. ZOVIRAX [Concomitant]
     Active Substance: ACYCLOVIR
     Indication: Product used for unknown indication
     Dosage: TABLET-400MG TAKE 0.5? TABLETS BY MOUTH TWICE? DAILY
     Route: 048
  10. ZYLOPRIM [Concomitant]
     Active Substance: ALLOPURINOL
     Indication: Product used for unknown indication
     Dosage: TABLET-100MG TAKE 1? TABLET BY MOUTH ONCE DAILY
     Route: 048
  11. ALPHA LIPOIC ACID [Concomitant]
     Active Substance: .ALPHA.-LIPOIC ACID
     Indication: Product used for unknown indication
     Dosage: TAKE 1 CAPSULE BY MOUTH? ONCE DAILY
     Route: 048
  12. ARNICA MONTANA FLOWER [Concomitant]
     Active Substance: ARNICA MONTANA FLOWER
     Indication: Product used for unknown indication
     Dosage: APPLY TO AFFECTED AREA
     Route: 061
  13. ASPIRIN [Concomitant]
     Active Substance: ASPIRIN
     Indication: Product used for unknown indication
     Dosage: TABLET-81MG EC TAKE 1? TABLET BY MOUTH ONCE DAILY
     Route: 048
  14. CALCIUM CARBONATE\CHOLECALCIFEROL [Concomitant]
     Active Substance: CALCIUM CARBONATE\CHOLECALCIFEROL
     Indication: Product used for unknown indication
     Dosage: TAKE 1 CAPSULE BY MOUTH? TWICE DAILY
     Route: 048
  15. REFRESH TEARS [Concomitant]
     Active Substance: CARBOXYMETHYLCELLULOSE SODIUM
     Indication: Product used for unknown indication
     Dosage: 1 DROP AS NEEDED
     Route: 047
  16. VITAMIN D3 [Concomitant]
     Active Substance: CHOLECALCIFEROL
     Indication: Product used for unknown indication
     Dosage: 1000 UNIT TAKE 1000 UNITS? BY MOUTH ONCE DAILY
     Route: 048
  17. CRANBERRY [Concomitant]
     Active Substance: CRANBERRY
     Indication: Product used for unknown indication
     Dosage: CAPSULE-400MG TAKE 1? CAPSULE BY MOUTH ONCE? DAILY
     Route: 048
  18. VITAMIN B12 [Concomitant]
     Active Substance: CYANOCOBALAMIN
     Indication: Product used for unknown indication
     Dosage: TABLET-1000MCG TAKE 1 TABLET BY MOUTH ONCE DAILY
     Route: 048
  19. DECADRON [Concomitant]
     Active Substance: DEXAMETHASONE
     Indication: Product used for unknown indication
     Dosage: TABLE-4MG TAKE 5 TABS ONCE WEEKLY
     Route: 048
  20. ROBITUSSIN (GUAIFENESIN) [Concomitant]
     Active Substance: GUAIFENESIN
     Indication: Cough
     Dosage: TAKE 10ML BY MOUTH AS? NEEDED
     Route: 048
  21. DIETARY SUPPLEMENT [Concomitant]
     Active Substance: DIETARY SUPPLEMENT
     Indication: Product used for unknown indication
     Dosage: TAKE 1 CAPSULE BY MOUTH ONCE DAILY. EPIC PRO 25 STRAIN PROBIOTIC
     Route: 048
  22. LASIX [Concomitant]
     Active Substance: FUROSEMIDE
     Indication: Product used for unknown indication
     Dosage: TABLET-40MG TAKE 1 TABLET? BY MOUTH TWICE DAILY
     Route: 048
  23. NEURONTIN [Concomitant]
     Active Substance: GABAPENTIN
     Indication: Product used for unknown indication
     Dosage: TAKE 1 CAPSULE BY MOUTH? TWICE DAILY FOR 180 DAYS
     Route: 048
  24. GARLIC OIL [Concomitant]
     Active Substance: GARLIC OIL
     Indication: Product used for unknown indication
     Dosage: TAKE 1 CAPSULE BY MOUTH? ONCE DAILY
     Route: 048
  25. GINGER [Concomitant]
     Active Substance: GINGER
     Indication: Product used for unknown indication
     Dosage: 1 TABLET ONCE DAILY
     Route: 048
  26. PROBIOTIC COMPLEX [Concomitant]
     Indication: Product used for unknown indication
     Dosage: TAKE 1 TABLET BY MOUTH? ONCE DAILY
     Route: 048
  27. IMODIUM [Concomitant]
     Active Substance: LOPERAMIDE HYDROCHLORIDE
     Indication: Product used for unknown indication
     Dosage: TABLET-2MG TAKE 2MG BY? MOUTH AS NEEDED
     Route: 048
  28. MILK OF MAGNESIA [Concomitant]
     Active Substance: MAGNESIUM HYDROXIDE
     Indication: Product used for unknown indication
     Dosage: TAKE 30 ML BY MOUTH AS NEEDED
     Route: 048
  29. Multivitamins-Iron [Concomitant]
     Indication: Product used for unknown indication
     Dosage: TAKE 1 TABLET BY MOUTH? THREE TIMES A WEEK
     Route: 048
  30. MYCOSTATIN [Concomitant]
     Active Substance: NYSTATIN
     Indication: Product used for unknown indication
     Dosage: APPLY 1 APPLICATION TO? AFFECTED AREA THREE TIMES? DAILY
     Route: 048
  31. FISH OIL [Concomitant]
     Active Substance: FISH OIL
     Indication: Product used for unknown indication
     Dosage: TAKE 1 CAPSULE BY MOUTH? TWICE DAILY
     Route: 048
  32. DIPHENHYDRAMINE;LIDOCAINE [Concomitant]
     Indication: Product used for unknown indication
     Dosage: TAKE 5ML BY MOUTH EVERY 6? HOURS AS NEEDED
     Route: 048
  33. ULTRAM [Concomitant]
     Active Substance: TRAMADOL HYDROCHLORIDE
     Indication: Product used for unknown indication
     Dosage: TAKE 1 TABLET BY MOUTH EVERY 6 HOURS AS NEEDED FOR UP TO 30 DAYS
     Route: 048
  34. HERBALS\TURMERIC [Concomitant]
     Active Substance: HERBALS\TURMERIC
     Indication: Product used for unknown indication
     Dosage: TAKE 1 TABLET BY MOUTH? TWICE DAILY
     Route: 048
  35. ELIQUIS [Concomitant]
     Active Substance: APIXABAN
     Indication: Product used for unknown indication
     Dosage: TAKE 1 TAB BY MOUTH ONCE? DAILY
     Route: 048
  36. TOPROL XL [Concomitant]
     Active Substance: METOPROLOL SUCCINATE
     Indication: Product used for unknown indication
     Dosage: TAKE 1 TAB BY MOUTH ONCE DAILY , XL
     Route: 048

REACTIONS (2)
  - Death [Fatal]
  - Off label use [Fatal]
